FAERS Safety Report 4880278-0 (Version None)
Quarter: 2006Q1

REPORT INFORMATION
  Report Type: 
  Country: None (occurrence: None)
  Receive Date: 20060111
  Receipt Date: 20060111
  Transmission Date: 20060701
  Serious: Yes (Hospitalization)
  Sender: FDA-Public Use
  Company Number: None

PATIENT
  Age: 52 Year
  Sex: Male
  Weight: 60.3 kg

DRUGS (1)
  1. BACTRIM DS [Suspect]
     Indication: ANTIBIOTIC PROPHYLAXIS
     Dosage: DS QD, DS QD, ORAL
     Route: 048
     Dates: start: 20051118, end: 20051202

REACTIONS (2)
  - ANGIONEUROTIC OEDEMA [None]
  - RASH [None]
